FAERS Safety Report 24276981 (Version 1)
Quarter: 2024Q3

REPORT INFORMATION
  Report Type: Spontaneous
  Country: KR (occurrence: KR)
  Receive Date: 20240903
  Receipt Date: 20240903
  Transmission Date: 20241017
  Serious: Yes (Hospitalization)
  Sender: MYLAN
  Company Number: KR-MYLANLABS-2024M1079569

PATIENT
  Age: 21 Year

DRUGS (1)
  1. ZELDOX [Suspect]
     Active Substance: ZIPRASIDONE
     Indication: Product used for unknown indication
     Dosage: 40 MILLIGRAM
     Route: 065
     Dates: start: 202406, end: 202408

REACTIONS (3)
  - Seizure [Recovered/Resolved]
  - Head discomfort [Unknown]
  - Syncope [Unknown]

NARRATIVE: CASE EVENT DATE: 20240601
